FAERS Safety Report 10750136 (Version 3)
Quarter: 2015Q1

REPORT INFORMATION
  Report Type: Spontaneous
  Country: YE (occurrence: YE)
  Receive Date: 20150129
  Receipt Date: 20150227
  Transmission Date: 20150721
  Serious: Yes (Death, Other)
  Sender: FDA-Public Use
  Company Number: PHHY2015YE009337

PATIENT
  Age: 35 Year
  Sex: Female

DRUGS (1)
  1. ACLASTA [Suspect]
     Active Substance: ZOLEDRONIC ACID
     Indication: OSTEOPOROSIS
     Dosage: UNK
     Route: 042
     Dates: start: 2014

REACTIONS (5)
  - Pancreatitis [Unknown]
  - Sepsis [Fatal]
  - Ketoacidosis [Fatal]
  - Abdominal pain upper [Unknown]
  - Pancreatic pseudocyst [Unknown]
